FAERS Safety Report 18795724 (Version 2)
Quarter: 2021Q1

REPORT INFORMATION
  Report Type: Spontaneous
  Country: CO (occurrence: CO)
  Receive Date: 20210127
  Receipt Date: 20210310
  Transmission Date: 20210419
  Serious: Yes (Hospitalization, Other)
  Sender: FDA-Public Use
  Company Number: NVSC2021CO015636

PATIENT
  Sex: Male
  Weight: 56 kg

DRUGS (2)
  1. REVOLADE [Suspect]
     Active Substance: ELTROMBOPAG OLAMINE
     Dosage: 25 MG, QD
     Route: 048
     Dates: start: 202012
  2. REVOLADE [Suspect]
     Active Substance: ELTROMBOPAG OLAMINE
     Indication: IMMUNE THROMBOCYTOPENIA
     Dosage: 50 MG, QD (STARTED: YEAR AND A HALF AGO)
     Route: 048
     Dates: end: 202012

REACTIONS (3)
  - Disease recurrence [Unknown]
  - Drug dependence [Unknown]
  - Platelet count decreased [Unknown]
